FAERS Safety Report 19453621 (Version 1)
Quarter: 2021Q2

REPORT INFORMATION
  Report Type: Spontaneous
  Country: NL (occurrence: NL)
  Receive Date: 20210623
  Receipt Date: 20210623
  Transmission Date: 20210717
  Serious: Yes (Life-Threatening)
  Sender: FDA-Public Use
  Company Number: NVSC2021NL139938

PATIENT
  Age: 59 Year
  Sex: Female
  Weight: 85 kg

DRUGS (2)
  1. QUETIAPINE. [Suspect]
     Active Substance: QUETIAPINE
     Indication: OBSESSIVE THOUGHTS
     Dosage: 25 MG, QD (25 MG PER DAG ,VOOR 3 WEKEN, TEGELIJKERTIJD BEGONNEN, NU GESTOPT)
     Route: 065
     Dates: start: 20210505, end: 20210601
  2. TEMAZEPAM. [Concomitant]
     Active Substance: TEMAZEPAM
     Indication: PRODUCT USED FOR UNKNOWN INDICATION
     Dosage: UNK
     Route: 065

REACTIONS (9)
  - Nausea [Recovering/Resolving]
  - Fatigue [Not Recovered/Not Resolved]
  - Headache [Not Recovered/Not Resolved]
  - Malaise [Not Recovered/Not Resolved]
  - Urinary retention [Recovering/Resolving]
  - Thirst [Recovering/Resolving]
  - Oedema peripheral [Not Recovered/Not Resolved]
  - Lymph node pain [Not Recovered/Not Resolved]
  - Decreased appetite [Recovering/Resolving]

NARRATIVE: CASE EVENT DATE: 20210508
